FAERS Safety Report 15643822 (Version 2)
Quarter: 2019Q1

REPORT INFORMATION
  Report Type: Spontaneous
  Country: US (occurrence: US)
  Receive Date: 20181121
  Receipt Date: 20190321
  Transmission Date: 20190417
  Serious: No
  Sender: FDA-Public Use
  Company Number: US-PFIZER INC-2018477005

PATIENT
  Age: 7 Year
  Sex: Female

DRUGS (1)
  1. GENOTROPIN [Suspect]
     Active Substance: SOMATROPIN
     Dosage: 0.9 MG, DAILY
     Dates: start: 20130131

REACTIONS (5)
  - Blood creatinine decreased [Unknown]
  - Blood potassium increased [Unknown]
  - Glycosylated haemoglobin increased [Unknown]
  - Blood 25-hydroxycholecalciferol decreased [Unknown]
  - Albumin globulin ratio increased [Unknown]

NARRATIVE: CASE EVENT DATE: 20180528
